FAERS Safety Report 9856840 (Version 1)
Quarter: 2014Q1

REPORT INFORMATION
  Report Type: Spontaneous
  Country: DE (occurrence: DE)
  Receive Date: 20140130
  Receipt Date: 20140130
  Transmission Date: 20141002
  Serious: Yes (Life-Threatening, Other)
  Sender: FDA-Public Use
  Company Number: DE-009507513-1401DEU012599

PATIENT
  Age: 81 Year
  Sex: Male

DRUGS (12)
  1. XELEVIA [Suspect]
     Indication: TYPE 2 DIABETES MELLITUS
     Dosage: 100 MG, QD
     Route: 048
     Dates: end: 20140120
  2. METFORMIN [Suspect]
     Indication: TYPE 2 DIABETES MELLITUS
     Dosage: 1000 MG, BID
     Route: 048
     Dates: end: 20140120
  3. RAMIPRIL [Suspect]
     Indication: HYPERTENSION
     Dosage: 5 MG, QD
     Route: 048
     Dates: end: 20140120
  4. TOREM [Suspect]
     Indication: HYPERTENSION
     Dosage: 10 MG, QD
     Route: 048
     Dates: end: 20140120
  5. HYDROCHLOROTHIAZIDE [Concomitant]
     Indication: HYPERTENSION
     Dosage: 25 MG, UNK
     Route: 048
     Dates: end: 20140120
  6. FOLSAN [Concomitant]
     Indication: FOLATE DEFICIENCY
     Dosage: 5 MG, UNK
  7. METOHEXAL [Concomitant]
     Indication: TACHYCARDIA
     Dosage: 23.75 MG, BID
  8. KALINOR [Concomitant]
     Indication: HYPOKALAEMIA
     Dosage: 1 BEUTEL/3XWOCHE
     Dates: end: 20140120
  9. SIMVASTATIN [Concomitant]
     Indication: HYPERCHOLESTEROLAEMIA
     Dosage: UNK
     Route: 048
  10. PROSTAGUTT FORTE [Concomitant]
     Indication: BENIGN PROSTATIC HYPERPLASIA
     Dosage: UNK, QD
     Dates: end: 20140120
  11. ASPIRIN [Concomitant]
     Indication: CORONARY ARTERY DISEASE
     Dosage: 100 MG, QD
  12. NOVALGIN (DIPYRONE) [Concomitant]
     Indication: PAIN
     Dosage: BEI BEDARF

REACTIONS (3)
  - Lactic acidosis [Not Recovered/Not Resolved]
  - Hypoglycaemia [Not Recovered/Not Resolved]
  - Renal failure acute [Not Recovered/Not Resolved]
